FAERS Safety Report 18990682 (Version 3)
Quarter: 2021Q2

REPORT INFORMATION
  Report Type: Spontaneous
  Country: DE (occurrence: DE)
  Receive Date: 20210310
  Receipt Date: 20210521
  Transmission Date: 20210717
  Serious: Yes (Hospitalization)
  Sender: FDA-Public Use
  Company Number: NVSC2021DE048145

PATIENT
  Age: 39 Year
  Sex: Female
  Weight: 80 kg

DRUGS (3)
  1. PEGFILGRASTIM [Suspect]
     Active Substance: PEGFILGRASTIM
     Dosage: 6 MG
     Route: 058
     Dates: start: 20210309, end: 20210309
  2. PEGFILGRASTIM [Suspect]
     Active Substance: PEGFILGRASTIM
     Dosage: 6 MG (STRENGTH  6 MG, 1ST CYCLE)
     Route: 058
     Dates: start: 20210401, end: 20210401
  3. PEGFILGRASTIM [Suspect]
     Active Substance: PEGFILGRASTIM
     Indication: NEUTROPENIA
     Dosage: 6 MG (STRENGTH  6 MG, 1ST CYCLE)
     Route: 058
     Dates: start: 20210121, end: 20210121

REACTIONS (3)
  - Pain in extremity [Recovered/Resolved]
  - Febrile neutropenia [Recovered/Resolved]
  - General physical health deterioration [Recovered/Resolved]

NARRATIVE: CASE EVENT DATE: 20210127
